FAERS Safety Report 7835371-7 (Version None)
Quarter: 2011Q4

REPORT INFORMATION
  Report Type: 
  Country: None (occurrence: None)
  Receive Date: 20111024
  Receipt Date: 20111014
  Transmission Date: 20120403
  Serious: Yes (Other)
  Sender: FDA-Public Use
  Company Number: PHEH2011US06040

PATIENT
  Sex: Male

DRUGS (18)
  1. CYMBALTA [Concomitant]
     Indication: ANXIETY
  2. PRAVASTATIN SODIUM [Concomitant]
     Indication: BLOOD CHOLESTEROL
  3. CARISOPRODOL [Concomitant]
  4. CALCIUM CARBONATE [Concomitant]
  5. ASPIRIN [Concomitant]
  6. TEKTURNA [Suspect]
  7. VALTURNA [Suspect]
  8. SYNTHROID [Concomitant]
     Indication: THYROID DISORDER
  9. CLONAZEPAM [Concomitant]
     Indication: ANXIETY
  10. FISH OIL [Concomitant]
  11. LISINOPRIL [Suspect]
  12. ANTIHYPERTENSIVES [Suspect]
     Indication: BLOOD PRESSURE
     Dosage: 1 DF, UNK
  13. FENTANYL [Concomitant]
     Indication: BACK PAIN
  14. HYDROCODONE BITARTRATE [Concomitant]
     Indication: BACK PAIN
  15. SOMA [Concomitant]
  16. BENAZEPRIL HYDROCHLORIDE [Suspect]
  17. ANALGESICS [Concomitant]
     Indication: BACK PAIN
  18. DIOVAN [Suspect]

REACTIONS (7)
  - HAEMORRHAGE [None]
  - VERTIGO [None]
  - HEAD INJURY [None]
  - LOSS OF CONSCIOUSNESS [None]
  - ROAD TRAFFIC ACCIDENT [None]
  - BLOOD PRESSURE FLUCTUATION [None]
  - DRUG INEFFECTIVE [None]
